FAERS Safety Report 5659106-1 (Version None)
Quarter: 2008Q1

REPORT INFORMATION
  Report Type: 
  Country: None (occurrence: None)
  Receive Date: 20080219
  Receipt Date: 20071119
  Transmission Date: 20080703
  Serious: No
  Sender: FDA-Public Use
  Company Number: WAES 0709USA01455

PATIENT
  Age: 77 Year
  Sex: Female
  Weight: 82.5547 kg

DRUGS (7)
  1. JANUVIA [Suspect]
     Indication: DIABETES MELLITUS
     Dosage: 50 MG/DAILY/PO
     Route: 048
     Dates: start: 20070701, end: 20070901
  2. DIOVAN [Concomitant]
  3. LANTUS [Concomitant]
  4. LASIX [Concomitant]
  5. NOVOLOG [Concomitant]
  6. PLAVIX [Concomitant]
  7. ERTAPENEM SODIUM [Concomitant]

REACTIONS (3)
  - RASH ERYTHEMATOUS [None]
  - RASH PAPULAR [None]
  - RASH PRURITIC [None]
